FAERS Safety Report 22266116 (Version 1)
Quarter: 2023Q2

REPORT INFORMATION
  Report Type: Report from Study
  Country: CH (occurrence: CH)
  Receive Date: 20230428
  Receipt Date: 20230428
  Transmission Date: 20230721
  Serious: Yes (Other)
  Sender: FDA-Public Use
  Company Number: CH-TEVA-2023-CH-2880490

PATIENT
  Age: 45 Year
  Sex: Male

DRUGS (2)
  1. ATORVASTATIN [Suspect]
     Active Substance: ATORVASTATIN
     Indication: Product used for unknown indication
     Route: 065
  2. DALTEPARIN [Suspect]
     Active Substance: DALTEPARIN
     Indication: Product used for unknown indication
     Route: 065

REACTIONS (1)
  - Drug-induced liver injury [Unknown]
